FAERS Safety Report 8409806-5 (Version None)
Quarter: 2012Q2

REPORT INFORMATION
  Report Type: 
  Country: None (occurrence: None)
  Receive Date: 20120605
  Receipt Date: 20120530
  Transmission Date: 20120825
  Serious: No
  Sender: FDA-Public Use
  Company Number: US-PFIZER INC-2012131207

PATIENT
  Sex: Female
  Weight: 98.866 kg

DRUGS (4)
  1. LYRICA [Suspect]
     Indication: PERIPHERAL NERVE INJURY
     Dosage: 150 MG, DAILY
     Route: 048
     Dates: start: 20120201, end: 20120101
  2. LYRICA [Suspect]
     Dosage: 75 MG, DAILY
     Route: 048
     Dates: start: 20120101, end: 20120301
  3. LYRICA [Suspect]
     Dosage: 75 MG, DAILY
     Route: 048
     Dates: start: 20120101
  4. LYRICA [Suspect]
     Dosage: 150 MG, DAILY
     Route: 048
     Dates: start: 20120101, end: 20120101

REACTIONS (2)
  - FOOD POISONING [None]
  - DIZZINESS [None]
